FAERS Safety Report 9239602 (Version 5)
Quarter: 2015Q2

REPORT INFORMATION
  Report Type: Spontaneous
  Country: US (occurrence: US)
  Receive Date: 20130418
  Receipt Date: 20150623
  Transmission Date: 20150821
  Serious: No
  Sender: FDA-Public Use
  Company Number: US-009507513-1304USA008275

PATIENT
  Sex: Male
  Weight: 86.35 kg

DRUGS (2)
  1. PROPECIA [Suspect]
     Active Substance: FINASTERIDE
     Indication: ANDROGENETIC ALOPECIA
  2. PROPECIA [Suspect]
     Active Substance: FINASTERIDE
     Indication: ALOPECIA
     Dosage: 1 MG, QD
     Route: 048
     Dates: start: 1999, end: 20140825

REACTIONS (40)
  - Fatigue [Not Recovered/Not Resolved]
  - Lipoma [Unknown]
  - Hypercholesterolaemia [Unknown]
  - Libido decreased [Not Recovered/Not Resolved]
  - Blood testosterone decreased [Unknown]
  - Chest pain [Unknown]
  - Abnormal loss of weight [Unknown]
  - Chest pain [Unknown]
  - Chromaturia [Unknown]
  - Polycythaemia [Unknown]
  - Cognitive disorder [Not Recovered/Not Resolved]
  - Anxiety [Not Recovered/Not Resolved]
  - Decreased appetite [Unknown]
  - Urinary tract disorder [Unknown]
  - Spinal pain [Unknown]
  - Chronic obstructive pulmonary disease [Not Recovered/Not Resolved]
  - Mycobacterium tuberculosis complex test positive [Unknown]
  - Headache [Recovering/Resolving]
  - Tendonitis [Unknown]
  - Pain in extremity [Unknown]
  - Paraesthesia [Unknown]
  - Shoulder operation [Unknown]
  - Decreased interest [Unknown]
  - Paraesthesia [Unknown]
  - Weight decreased [Unknown]
  - Abdominal pain [Unknown]
  - Haemochromatosis [Unknown]
  - Erectile dysfunction [Unknown]
  - Hypertensive heart disease [Unknown]
  - Rotator cuff syndrome [Unknown]
  - Adverse event [Unknown]
  - Depression [Not Recovered/Not Resolved]
  - Visual impairment [Unknown]
  - Vision blurred [Unknown]
  - Cataract [Unknown]
  - Insomnia [Unknown]
  - Gastrooesophageal reflux disease [Unknown]
  - Blood iron increased [Unknown]
  - Flushing [Unknown]
  - Sexual dysfunction [Not Recovered/Not Resolved]

NARRATIVE: CASE EVENT DATE: 2002
